FAERS Safety Report 10370625 (Version 2)
Quarter: 2015Q2

REPORT INFORMATION
  Report Type: Spontaneous
  Country: US (occurrence: US)
  Receive Date: 20140808
  Receipt Date: 20150616
  Transmission Date: 20150821
  Serious: Yes (Hospitalization, Other)
  Sender: FDA-Public Use
  Company Number: US-BAYER-2014-115313

PATIENT
  Age: 36 Year
  Sex: Female
  Weight: 71.66 kg

DRUGS (25)
  1. GIANVI [Suspect]
     Active Substance: DROSPIRENONE\ETHINYL ESTRADIOL
     Indication: PREMENSTRUAL DYSPHORIC DISORDER
     Dosage: UNK
     Dates: start: 20101028, end: 20110105
  2. SENOKOT [Concomitant]
     Active Substance: SENNOSIDES
  3. GIANVI [Suspect]
     Active Substance: DROSPIRENONE\ETHINYL ESTRADIOL
     Indication: CONTRACEPTION
  4. YASMIN [Suspect]
     Active Substance: DROSPIRENONE\ETHINYL ESTRADIOL
     Indication: CONTRACEPTION
     Dosage: UNK
     Dates: start: 2004
  5. CLONAZEPAM. [Concomitant]
     Active Substance: CLONAZEPAM
     Indication: SLEEP DISORDER
     Dosage: UNK
     Dates: start: 2005
  6. PRAMIPEXOLE [Concomitant]
     Active Substance: PRAMIPEXOLE
     Indication: BIPOLAR DISORDER
     Dosage: UNK
     Dates: start: 20100330
  7. DICLOFENAC [Concomitant]
     Active Substance: DICLOFENAC
     Indication: BACK PAIN
     Dosage: UNK
     Dates: start: 20101230, end: 20110105
  8. VALIUM [Concomitant]
     Active Substance: DIAZEPAM
  9. YAZ [Suspect]
     Active Substance: DROSPIRENONE\ETHINYL ESTRADIOL
     Indication: HORMONE THERAPY
  10. MIRAPEX [Concomitant]
     Active Substance: PRAMIPEXOLE DIHYDROCHLORIDE
     Indication: SLEEP DISORDER
     Dosage: UNK
     Dates: start: 2009, end: 201111
  11. VOLTAREN [Concomitant]
     Active Substance: DICLOFENAC SODIUM
  12. YAZ [Suspect]
     Active Substance: DROSPIRENONE\ETHINYL ESTRADIOL
     Indication: PREMENSTRUAL DYSPHORIC DISORDER
  13. GIANVI [Suspect]
     Active Substance: DROSPIRENONE\ETHINYL ESTRADIOL
     Indication: HORMONE THERAPY
  14. VITAMIN C [Concomitant]
     Active Substance: ASCORBIC ACID
     Dosage: UNK
     Dates: start: 2006
  15. CYCLOBENZAPRINE [Concomitant]
     Active Substance: CYCLOBENZAPRINE
     Indication: BACK PAIN
     Dosage: UNK
     Dates: start: 20101230, end: 20110105
  16. YASMIN [Suspect]
     Active Substance: DROSPIRENONE\ETHINYL ESTRADIOL
     Indication: HORMONE THERAPY
  17. YAZ [Suspect]
     Active Substance: DROSPIRENONE\ETHINYL ESTRADIOL
     Indication: CONTRACEPTION
     Dosage: UNK
     Dates: start: 201007, end: 20101028
  18. YASMIN [Suspect]
     Active Substance: DROSPIRENONE\ETHINYL ESTRADIOL
     Indication: PREMENSTRUAL DYSPHORIC DISORDER
  19. SEROQUEL [Concomitant]
     Active Substance: QUETIAPINE FUMARATE
     Indication: BIPOLAR DISORDER
     Dosage: UNK
     Dates: start: 2006
  20. NAPROXEN. [Concomitant]
     Active Substance: NAPROXEN
     Dosage: UNK
     Dates: start: 20101025
  21. ADDERALL XR [Concomitant]
     Active Substance: AMPHETAMINE ASPARTATE\AMPHETAMINE SULFATE\DEXTROAMPHETAMINE SACCHARATE\DEXTROAMPHETAMINE SULFATE
     Indication: DEPRESSION
     Dosage: UNK
     Dates: start: 201010, end: 201103
  22. CLONAZEPAM. [Concomitant]
     Active Substance: CLONAZEPAM
     Indication: ANXIETY
  23. DIAZEPAM. [Concomitant]
     Active Substance: DIAZEPAM
     Indication: BACK PAIN
     Dosage: UNK
     Dates: start: 20101229, end: 20110119
  24. AMFETAMINE [Concomitant]
     Active Substance: AMPHETAMINE
     Dosage: UNK
     Dates: start: 20101007, end: 20101221
  25. MIRTAZAPINE. [Concomitant]
     Active Substance: MIRTAZAPINE
     Dosage: UNK
     Dates: start: 20101008, end: 20110104

REACTIONS (12)
  - Pulmonary fibrosis [None]
  - Dyspnoea [Recovering/Resolving]
  - Injury [Recovering/Resolving]
  - Chest pain [Recovering/Resolving]
  - Pain [Recovering/Resolving]
  - Pleural effusion [Recovering/Resolving]
  - General physical health deterioration [Recovering/Resolving]
  - Pain [None]
  - Emotional distress [None]
  - Pulmonary embolism [Recovering/Resolving]
  - Back pain [None]
  - Anxiety [None]

NARRATIVE: CASE EVENT DATE: 201101
